FAERS Safety Report 4361160-4 (Version None)
Quarter: 2004Q2

REPORT INFORMATION
  Report Type: 
  Country: None (occurrence: None)
  Receive Date: 20040507
  Receipt Date: 20030828
  Transmission Date: 20050107
  Serious: Yes (Hospitalization)
  Sender: FDA-Public Use
  Company Number: PHEH2003US07919

PATIENT
  Age: 37 Year
  Sex: Male

DRUGS (1)
  1. TEGRETOL [Suspect]
     Dosage: ORAL
     Route: 048

REACTIONS (1)
  - DRUG WITHDRAWAL CONVULSIONS [None]
